FAERS Safety Report 21440982 (Version 2)
Quarter: 2022Q4

REPORT INFORMATION
  Report Type: Spontaneous
  Country: AT (occurrence: AT)
  Receive Date: 20221011
  Receipt Date: 20221128
  Transmission Date: 20230112
  Serious: Yes (Death)
  Sender: FDA-Public Use
  Company Number: AT-AMERICAN REGENT INC-2022002924

PATIENT
  Age: 54 Year
  Sex: Female
  Weight: 89 kg

DRUGS (2)
  1. FERINJECT [Suspect]
     Active Substance: FERRIC CARBOXYMALTOSE
     Indication: Product used for unknown indication
     Dosage: 500 MILLIGRAM (50 MG/ML/10 ML) DILUTED IN 250 ML OF SODIUM CHLORIDE (NACL)
     Dates: start: 20220601, end: 20220601
  2. PREDNISOLONE [Concomitant]
     Active Substance: PREDNISOLONE
     Indication: Psoriatic arthropathy
     Dosage: 5 MILLIGRAM DAILY
     Route: 048

REACTIONS (3)
  - Cardiac arrest [Fatal]
  - Circulatory collapse [Fatal]
  - Product preparation issue [Unknown]

NARRATIVE: CASE EVENT DATE: 20220601
